FAERS Safety Report 6562616-6 (Version None)
Quarter: 2010Q1

REPORT INFORMATION
  Report Type: 
  Country: None (occurrence: None)
  Receive Date: 20100130
  Receipt Date: 20091116
  Transmission Date: 20100710
  Serious: No
  Sender: FDA-Public Use
  Company Number: US-ABBOTT-09P-163-0609671-00

PATIENT
  Sex: Female
  Weight: 54.48 kg

DRUGS (5)
  1. HUMIRA [Suspect]
     Indication: RHEUMATOID ARTHRITIS
     Route: 058
     Dates: start: 20091001
  2. SYNTHROID [Concomitant]
     Indication: THYROID OPERATION
  3. VITAMIN D [Concomitant]
     Indication: SUPPLEMENTATION THERAPY
  4. CALCIUM [Concomitant]
     Indication: SUPPLEMENTATION THERAPY
  5. PLAQUENIL [Concomitant]
     Indication: ARTHRITIS
     Route: 048

REACTIONS (4)
  - CHILLS [None]
  - FATIGUE [None]
  - FEELING COLD [None]
  - INJECTION SITE PAIN [None]
